FAERS Safety Report 7298007-2 (Version None)
Quarter: 2011Q1

REPORT INFORMATION
  Report Type: 
  Country: None (occurrence: None)
  Receive Date: 20110217
  Receipt Date: 20110214
  Transmission Date: 20110831
  Serious: No
  Sender: FDA-Public Use
  Company Number: US-PFIZER INC-2011033109

PATIENT
  Sex: Female
  Weight: 122 kg

DRUGS (4)
  1. SERTRALINE HYDROCHLORIDE [Suspect]
     Dosage: 100 MG, UNK
     Route: 048
  2. ACETYLSALICYLIC ACID [Concomitant]
     Dosage: UNK, AS NEEDED
     Route: 048
  3. TYLENOL [Concomitant]
     Dosage: UNK
     Route: 048
  4. SERTRALINE HYDROCHLORIDE [Suspect]
     Indication: ANXIETY
     Dosage: UNK
     Route: 048

REACTIONS (6)
  - DYSGEUSIA [None]
  - WRONG TECHNIQUE IN DRUG USAGE PROCESS [None]
  - GLOSSODYNIA [None]
  - NASOPHARYNGITIS [None]
  - PAROSMIA [None]
  - PARAESTHESIA ORAL [None]
